FAERS Safety Report 24048647 (Version 2)
Quarter: 2024Q3

REPORT INFORMATION
  Report Type: Spontaneous
  Country: SA (occurrence: SA)
  Receive Date: 20240704
  Receipt Date: 20240722
  Transmission Date: 20241016
  Serious: Yes (Other)
  Sender: OCTAPHARMA
  Company Number: SA-OCTA-LIT04424

PATIENT
  Age: 12 Year
  Sex: Male

DRUGS (1)
  1. HUMAN IMMUNOGLOBULIN G [Suspect]
     Active Substance: HUMAN IMMUNOGLOBULIN G
     Indication: Bruton^s agammaglobulinaemia
     Route: 042

REACTIONS (1)
  - Glomerulonephritis membranoproliferative [Recovered/Resolved]
